FAERS Safety Report 5858132-7 (Version None)
Quarter: 2008Q3

REPORT INFORMATION
  Report Type: 
  Country: None (occurrence: None)
  Receive Date: 20080826
  Receipt Date: 20080822
  Transmission Date: 20090109
  Serious: Yes (Hospitalization)
  Sender: FDA-Public Use
  Company Number: A0531542A

PATIENT
  Age: 65 Year
  Sex: Female
  Weight: 54.5 kg

DRUGS (8)
  1. AVANDIA [Suspect]
     Dosage: 8MG PER DAY
     Route: 048
     Dates: start: 20041001, end: 20050303
  2. MICRONASE [Concomitant]
  3. GLUCOPHAGE [Concomitant]
  4. COREG [Concomitant]
  5. CATAPRES [Concomitant]
  6. HUMALOG [Concomitant]
     Dates: start: 20040101
  7. LANTUS [Concomitant]
     Dates: start: 20040101
  8. LOTREL [Concomitant]

REACTIONS (3)
  - CARDIAC FAILURE CONGESTIVE [None]
  - JOINT SWELLING [None]
  - PULMONARY OEDEMA [None]
